FAERS Safety Report 7154395-9 (Version None)
Quarter: 2010Q4

REPORT INFORMATION
  Report Type: 
  Country: None (occurrence: None)
  Receive Date: 20101213
  Receipt Date: 20101206
  Transmission Date: 20110411
  Serious: Yes (Death)
  Sender: FDA-Public Use
  Company Number: ES-ELI_LILLY_AND_COMPANY-ES201012001661

PATIENT

DRUGS (2)
  1. GEMCITABINE HCL [Suspect]
     Indication: SMALL CELL LUNG CANCER STAGE UNSPECIFIED
     Dosage: 1250 MG/M2, OTHER (ON DAYS 1 AND 15 OF A 4 WEEK CYCLE)
     Route: 065
  2. PACLITAXEL [Concomitant]
     Indication: SMALL CELL LUNG CANCER STAGE UNSPECIFIED
     Dosage: 80 MG/M2, OTHER (ON DAY 1 AND 15 OF A 4 WEEK CYCLE)

REACTIONS (1)
  - DEATH [None]
